FAERS Safety Report 17553643 (Version 1)
Quarter: 2020Q1

REPORT INFORMATION
  Report Type: Spontaneous
  Country: GB (occurrence: GB)
  Receive Date: 20200317
  Receipt Date: 20200317
  Transmission Date: 20200409
  Serious: Yes (Other)
  Sender: FDA-Public Use
  Company Number: GB-JNJFOC-20200314293

PATIENT
  Age: 69 Year
  Sex: Female
  Weight: 88.9 kg

DRUGS (4)
  1. GABAPENTIN. [Concomitant]
     Active Substance: GABAPENTIN
     Dosage: UNK
  2. RIVAROXABAN [Suspect]
     Active Substance: RIVAROXABAN
     Indication: THROMBOSIS
     Dosage: 20 MG, QD
     Route: 048
     Dates: start: 20191109
  3. OMEPRAZOLE. [Concomitant]
     Active Substance: OMEPRAZOLE
     Dosage: UNK
  4. DIHYDROCODEINE [Concomitant]
     Active Substance: DIHYDROCODEINE
     Dosage: UNK

REACTIONS (6)
  - Urinary incontinence [Recovering/Resolving]
  - Urinary retention [Recovering/Resolving]
  - Renal pain [Recovering/Resolving]
  - Bladder pain [Recovering/Resolving]
  - Pollakiuria [Recovering/Resolving]
  - Urethral pain [Recovering/Resolving]

NARRATIVE: CASE EVENT DATE: 20191109
